FAERS Safety Report 6306357-9 (Version None)
Quarter: 2009Q3

REPORT INFORMATION
  Report Type: 
  Country: None (occurrence: None)
  Receive Date: 20090812
  Receipt Date: 20090804
  Transmission Date: 20100115
  Serious: Yes (Hospitalization)
  Sender: FDA-Public Use
  Company Number: JP-ELI_LILLY_AND_COMPANY-JP200908001106

PATIENT
  Age: 19 Year
  Sex: Female

DRUGS (4)
  1. HUMALOG [Suspect]
     Indication: TYPE 1 DIABETES MELLITUS
     Route: 058
     Dates: start: 20080715, end: 20080801
  2. LANTUS [Concomitant]
     Indication: TYPE 1 DIABETES MELLITUS
     Route: 058
     Dates: start: 20080715
  3. HUMULIN N [Concomitant]
     Indication: DIABETIC KETOACIDOSIS
     Dates: start: 20080701, end: 20080701
  4. INSULIN HUMULIN [Concomitant]
     Indication: DIABETIC KETOACIDOSIS
     Dates: start: 20080701, end: 20080701

REACTIONS (1)
  - LIVER DISORDER [None]
